FAERS Safety Report 10656925 (Version 1)
Quarter: 2014Q4

REPORT INFORMATION
  Report Type: Spontaneous
  Country: NL (occurrence: None)
  Receive Date: 20141215
  Receipt Date: 20141215
  Transmission Date: 20150529
  Serious: Yes (Death)
  Sender: FDA-Public Use
  Company Number: INS201412-000313

PATIENT
  Age: 33 Year
  Sex: Male

DRUGS (2)
  1. FENTANYL(FENTANYL) [Suspect]
     Active Substance: FENTANYL CITRATE
  2. MORPHINE [Suspect]
     Active Substance: MORPHINE

REACTIONS (2)
  - Toxicity to various agents [None]
  - Pyomyositis [None]
